FAERS Safety Report 5136472-7 (Version None)
Quarter: 2006Q4

REPORT INFORMATION
  Report Type: 
  Country: None (occurrence: None)
  Receive Date: 20061027
  Receipt Date: 20061010
  Transmission Date: 20070319
  Serious: Yes (Hospitalization)
  Sender: FDA-Public Use
  Company Number: CH-ABBOTT-06P-087-0346393-00

PATIENT
  Age: 61 Year
  Sex: Male

DRUGS (6)
  1. CYCLOSPORINE [Suspect]
     Indication: IMMUNOSUPPRESSION
  2. CYCLOSPORINE [Suspect]
  3. HYPERICUM PERFORATUM [Interacting]
     Indication: DEPRESSION
  4. AZATHIOPRINE [Concomitant]
     Indication: IMMUNOSUPPRESSION
  5. CORTICOSTEROIDS [Concomitant]
     Indication: DRUG USE FOR UNKNOWN INDICATION
  6. MYCOPHENOLATE MOFETIL [Concomitant]
     Indication: IMMUNOSUPPRESSION

REACTIONS (4)
  - DRUG INTERACTION [None]
  - DRUG LEVEL DECREASED [None]
  - HEART TRANSPLANT REJECTION [None]
  - IMMUNOSUPPRESSANT DRUG LEVEL DECREASED [None]
